FAERS Safety Report 4738093-4 (Version None)
Quarter: 2005Q3

REPORT INFORMATION
  Report Type: 
  Country: None (occurrence: None)
  Receive Date: 20050809
  Receipt Date: 20050801
  Transmission Date: 20060218
  Serious: Yes (Other)
  Sender: FDA-Public Use
  Company Number: US-JNJFOC-20050800782

PATIENT
  Age: 55 Year
  Sex: Male
  Weight: 90.72 kg

DRUGS (1)
  1. LEVAQUIN [Suspect]
     Indication: PROSTATE INFECTION
     Route: 048
     Dates: start: 20041201, end: 20050101

REACTIONS (5)
  - DRUG INEFFECTIVE [None]
  - INTENTIONAL MISUSE [None]
  - MUSCLE INJURY [None]
  - PAIN [None]
  - TENDON RUPTURE [None]
